FAERS Safety Report 19282786 (Version 2)
Quarter: 2021Q2

REPORT INFORMATION
  Report Type: Spontaneous
  Country: SE (occurrence: SE)
  Receive Date: 20210520
  Receipt Date: 20210521
  Transmission Date: 20210717
  Serious: Yes (Other)
  Sender: FDA-Public Use
  Company Number: SE-MALLINCKRODT PHARMACEUTICALS-T202102213

PATIENT
  Sex: Male

DRUGS (2)
  1. UVADEX [Suspect]
     Active Substance: METHOXSALEN
     Indication: KIDNEY TRANSPLANT REJECTION
     Dosage: 2 TX/WEEK, EXTRACORPOREAL
     Route: 050
     Dates: start: 20210408
  2. ACD?A [Concomitant]
     Active Substance: ANHYDROUS CITRIC ACID\DEXTROSE MONOHYDRATE\SODIUM CITRATE
     Indication: ANTICOAGULANT THERAPY
     Dosage: UNK
     Route: 065

REACTIONS (4)
  - Product use in unapproved indication [Unknown]
  - Haptoglobin decreased [Unknown]
  - Blood lactate dehydrogenase increased [Unknown]
  - Haemolysis [Unknown]

NARRATIVE: CASE EVENT DATE: 2021
